FAERS Safety Report 13000183 (Version 2)
Quarter: 2016Q4

REPORT INFORMATION
  Report Type: Report from Study
  Country: BR (occurrence: BR)
  Receive Date: 20161205
  Receipt Date: 20161219
  Transmission Date: 20170207
  Serious: Yes (Hospitalization)
  Sender: FDA-Public Use
  Company Number: BR-ROCHE-1863448

PATIENT
  Sex: Female

DRUGS (4)
  1. PANTOPRAZOL [Concomitant]
     Active Substance: PANTOPRAZOLE SODIUM
     Indication: ABDOMINAL PAIN UPPER
     Dosage: 2 DF, QD
     Route: 048
     Dates: start: 20161206
  2. XOLAIR [Suspect]
     Active Substance: OMALIZUMAB
     Indication: ASTHMA
     Route: 058
     Dates: start: 20071008
  3. FORASEQ (BRAZIL) [Concomitant]
     Active Substance: BUDESONIDE\FORMOTEROL FUMARATE
     Indication: PRODUCT USED FOR UNKNOWN INDICATION
     Dosage: (STARTED SINCE APPROXIMATELY 3 YEARS)
     Route: 065
  4. PRELONE [Concomitant]
     Active Substance: PREDNISOLONE
     Indication: ASTHMA
     Dosage: 2 DF, QD
     Route: 048

REACTIONS (1)
  - Asthma [Recovering/Resolving]
